FAERS Safety Report 10136182 (Version 2)
Quarter: 2017Q1

REPORT INFORMATION
  Report Type: Spontaneous
  Country: US (occurrence: US)
  Receive Date: 20140429
  Receipt Date: 20170110
  Transmission Date: 20170428
  Serious: Yes (Life-Threatening, Hospitalization)
  Sender: FDA-Public Use
  Company Number: US-RANBAXY-2014US-80574

PATIENT
  Age: 19 Year
  Sex: Female

DRUGS (1)
  1. ACETAMINOPHEN. [Suspect]
     Active Substance: ACETAMINOPHEN
     Indication: DYSMENORRHOEA
     Dosage: 5 TABLETS EVERY HOUR FOR 2 DAYS
     Route: 065

REACTIONS (8)
  - Acute hepatic failure [Recovered/Resolved]
  - Pancreatitis [Recovered/Resolved]
  - Pancreatic pseudocyst [Recovered/Resolved]
  - Toxicity to various agents [Unknown]
  - Overdose [Unknown]
  - Acute kidney injury [Recovered/Resolved]
  - Respiratory failure [Unknown]
  - Metabolic acidosis [Unknown]
